FAERS Safety Report 20438286 (Version 1)
Quarter: 2022Q1

REPORT INFORMATION
  Report Type: Spontaneous
  Country: US (occurrence: US)
  Receive Date: 20220207
  Receipt Date: 20220207
  Transmission Date: 20220423
  Serious: Yes (Other)
  Sender: FDA-Public Use
  Company Number: US-GW PHARMA-202201USGW00441

PATIENT
  Sex: Female
  Weight: 58.97 kg

DRUGS (1)
  1. EPIDIOLEX [Suspect]
     Active Substance: CANNABIDIOL
     Indication: Product used for unknown indication
     Dosage: 10.17 MG/KG/DAY, 300 MILLIGRAM, BID
     Route: 048
     Dates: start: 20210128

REACTIONS (3)
  - Craniocerebral injury [Unknown]
  - Syncope [Unknown]
  - Disorientation [Unknown]
